FAERS Safety Report 12595395 (Version 1)
Quarter: 2016Q3

REPORT INFORMATION
  Report Type: Spontaneous
  Country: None (occurrence: US)
  Receive Date: 20160726
  Receipt Date: 20160726
  Transmission Date: 20161109
  Serious: Yes (Other)
  Sender: FDA-Public Use
  Company Number: US-ENDO PHARMACEUTICALS INC.-2015-002899

PATIENT
  Age: 73 Year
  Sex: Female
  Weight: 64.01 kg

DRUGS (10)
  1. LISINOPRIL TABLETS [Suspect]
     Active Substance: LISINOPRIL
     Indication: BLOOD PRESSURE MEASUREMENT
     Dosage: 10 MG TWICE A DAY
     Route: 065
     Dates: start: 2015
  2. EFFENETOR [Concomitant]
     Indication: NEOPLASM MALIGNANT
     Route: 065
     Dates: start: 201301, end: 201303
  3. SUTENT [Concomitant]
     Active Substance: SUNITINIB MALATE
     Indication: RENAL CELL CARCINOMA
     Dosage: 50 MG CAPSULES, ONCE A DAY FOR 10 DAYS, THEN OFF FOR 7 DAYS, THEN TAKE AGIAN FOR 10 MORE DAYS.
     Route: 048
     Dates: start: 201310
  4. SUTENT [Concomitant]
     Active Substance: SUNITINIB MALATE
     Indication: HEPATIC CANCER
  5. LISINOPRIL TABLETS [Suspect]
     Active Substance: LISINOPRIL
     Dosage: 5 MG IN THE MORNING 5 MG AT NIGHT
     Route: 065
     Dates: start: 2010, end: 201507
  6. LISINOPRIL TABLETS [Suspect]
     Active Substance: LISINOPRIL
     Dosage: 10 MG IN THE MORNING
     Route: 065
     Dates: start: 201507
  7. IMODIUM [Concomitant]
     Active Substance: LOPERAMIDE HYDROCHLORIDE
     Indication: PRODUCT USED FOR UNKNOWN INDICATION
     Route: 065
  8. BIOTIN [Concomitant]
     Active Substance: BIOTIN
     Indication: PRODUCT USED FOR UNKNOWN INDICATION
     Route: 065
  9. HYDROCHLOROTHIAZIDE. [Concomitant]
     Active Substance: HYDROCHLOROTHIAZIDE
     Indication: DIURETIC THERAPY
     Dosage: 25 MG TABLETS, ONCE IN THE MORNING
     Route: 048
  10. OMEPRAZOLE. [Concomitant]
     Active Substance: OMEPRAZOLE
     Indication: GASTRIC DISORDER
     Dosage: 20 MG FIRST THING IN THE MORNING
     Route: 048

REACTIONS (4)
  - Syncope [Recovered/Resolved]
  - Hypotension [Recovered/Resolved]
  - Head injury [Recovered/Resolved]
  - Diarrhoea [Recovered/Resolved]

NARRATIVE: CASE EVENT DATE: 201507
